FAERS Safety Report 8282070-6 (Version None)
Quarter: 2012Q2

REPORT INFORMATION
  Report Type: 
  Country: None (occurrence: None)
  Receive Date: 20120410
  Receipt Date: 20120327
  Transmission Date: 20120825
  Serious: No
  Sender: FDA-Public Use
  Company Number: WAES 96080242

PATIENT
  Age: 54 Year
  Sex: Female
  Weight: 48.9885 kg

DRUGS (7)
  1. FOSAMAX [Suspect]
     Indication: OSTEOPOROSIS
     Dosage: 10 MG/DAILY/PO
     Route: 048
     Dates: start: 19960624
  2. PREMPRO [Concomitant]
  3. LEVOTHROID [Concomitant]
  4. ESTRADERM [Concomitant]
  5. CYCRIN [Concomitant]
  6. OGEN [Concomitant]
  7. SYNTHROID [Concomitant]

REACTIONS (2)
  - OROPHARYNGEAL PAIN [None]
  - ALOPECIA [None]
